FAERS Safety Report 11429054 (Version 1)
Quarter: 2015Q3

REPORT INFORMATION
  Report Type: Spontaneous
  Country: US (occurrence: US)
  Receive Date: 20150828
  Receipt Date: 20150828
  Transmission Date: 20151125
  Serious: No
  Sender: FDA-Public Use
  Company Number: US-ROCHE-1223609

PATIENT
  Sex: Female
  Weight: 63.11 kg

DRUGS (3)
  1. RIBAVIRIN. [Suspect]
     Active Substance: RIBAVIRIN
     Indication: CHRONIC HEPATITIS C
     Dosage: IN DIVIDED DOSES
     Route: 065
     Dates: start: 20120507, end: 20130401
  2. PEGASYS [Suspect]
     Active Substance: PEGINTERFERON ALFA-2A
     Indication: CHRONIC HEPATITIS C
     Route: 058
     Dates: start: 20120507, end: 20130401
  3. PEGASYS [Suspect]
     Active Substance: PEGINTERFERON ALFA-2A
     Route: 065

REACTIONS (15)
  - Malaise [Unknown]
  - Alopecia [Unknown]
  - Anaemia [Unknown]
  - Neuralgia [Recovering/Resolving]
  - Abdominal pain lower [Unknown]
  - Pruritus [Unknown]
  - Psoriasis [Unknown]
  - Depression [Unknown]
  - Muscle spasms [Unknown]
  - Gingival bleeding [Unknown]
  - Weight decreased [Unknown]
  - Purpura [Unknown]
  - Gingival recession [Unknown]
  - Tongue discolouration [Unknown]
  - Cyst [Unknown]
